FAERS Safety Report 9749313 (Version 2)
Quarter: 2014Q1

REPORT INFORMATION
  Report Type: Spontaneous
  Country: US (occurrence: US)
  Receive Date: 20131212
  Receipt Date: 20140312
  Transmission Date: 20141002
  Serious: No
  Sender: FDA-Public Use
  Company Number: US-INCYTE CORPORATION-2013IN002611

PATIENT
  Sex: 0

DRUGS (8)
  1. JAKAFI [Suspect]
     Indication: MYELOFIBROSIS
     Dosage: 5 MG, BID
     Route: 048
  2. JAKAFI [Suspect]
     Dosage: 10 MG, BID
     Dates: start: 20130911
  3. JAKAFI [Suspect]
     Dosage: 15 MG, BID
  4. JAKAFI [Suspect]
     Dosage: 10 MG, BID
     Route: 048
  5. PRILOSEC [Concomitant]
  6. AMBIEN [Concomitant]
  7. ZANTAC [Concomitant]
  8. ZYRTEC [Concomitant]

REACTIONS (9)
  - Fatigue [Unknown]
  - Fluid retention [Unknown]
  - Varicose vein [Unknown]
  - Malaise [Unknown]
  - Dyspnoea [Unknown]
  - Anaemia [Unknown]
  - Weight increased [Unknown]
  - Drug ineffective [Unknown]
  - Platelet count decreased [Unknown]
